FAERS Safety Report 10041501 (Version 3)
Quarter: 2015Q3

REPORT INFORMATION
  Report Type: Other
  Country: JP (occurrence: JP)
  Receive Date: 20140327
  Receipt Date: 20150903
  Transmission Date: 20151125
  Serious: Yes (Death)
  Sender: FDA-Public Use
  Company Number: JP-DSJP-DSJ-2014-00361

PATIENT

DRUGS (6)
  1. MEVALOTIN TABLET 10MG [Suspect]
     Active Substance: PRAVASTATIN SODIUM
     Indication: PRODUCT USED FOR UNKNOWN INDICATION
     Dosage: 10 MG, QD
     Route: 048
     Dates: end: 20130406
  2. SENEVACUL [Suspect]
     Active Substance: SENNOSIDES A AND B
     Dosage: 12 MG, WHEN CONSTIPATION
     Route: 048
     Dates: end: 20130406
  3. SOLON [Suspect]
     Active Substance: SOFALCONE
     Indication: PRODUCT USED FOR UNKNOWN INDICATION
     Dosage: 50 MG, WHEN PAINFUL
     Route: 048
     Dates: end: 20130406
  4. OLMETEC TABLETS 20MG [Suspect]
     Active Substance: OLMESARTAN MEDOXOMIL
     Indication: PRODUCT USED FOR UNKNOWN INDICATION
     Dosage: 20 MG, QD
     Route: 048
     Dates: end: 20130406
  5. LOXONIN TABLETS 60MG [Suspect]
     Active Substance: LOXOPROFEN
     Indication: FRACTURE
     Dosage: 60 MG, WHEN PAINFUL
     Route: 048
     Dates: end: 20130406
  6. FAMOTIDINE. [Suspect]
     Active Substance: FAMOTIDINE
     Indication: PRODUCT USED FOR UNKNOWN INDICATION
     Dosage: 20 MG, QD
     Route: 048
     Dates: end: 20130406

REACTIONS (1)
  - Hepatitis fulminant [Fatal]

NARRATIVE: CASE EVENT DATE: 20130330
